FAERS Safety Report 9116095 (Version 1)
Quarter: 2013Q1

REPORT INFORMATION
  Report Type: Spontaneous
  Country: DK (occurrence: DK)
  Receive Date: 20130225
  Receipt Date: 20130225
  Transmission Date: 20140127
  Serious: No
  Sender: FDA-Public Use
  Company Number: DK-ENDO PHARMACEUTICALS INC.-FORT20130009

PATIENT
  Sex: Male

DRUGS (1)
  1. FORTESTA [Suspect]
     Indication: HYPOGONADISM
     Dosage: UNK
     Route: 061

REACTIONS (2)
  - Sensitisation [Not Recovered/Not Resolved]
  - Local reaction [Unknown]
